FAERS Safety Report 14554482 (Version 1)
Quarter: 2018Q1

REPORT INFORMATION
  Report Type: Spontaneous
  Country: AU (occurrence: AU)
  Receive Date: 20180220
  Receipt Date: 20180220
  Transmission Date: 20180509
  Serious: Yes (Other)
  Sender: FDA-Public Use
  Company Number: AU-AMGEN-AUSSP2018010416

PATIENT
  Age: 68 Year
  Sex: Female
  Weight: 58 kg

DRUGS (6)
  1. PROLIA [Suspect]
     Active Substance: DENOSUMAB
     Indication: OSTEOPOROSIS
     Dosage: 60 MG, Q6MO
     Route: 058
     Dates: start: 20170309
  2. BETMIGA [Concomitant]
     Active Substance: MIRABEGRON
     Indication: HYPERTONIC BLADDER
     Dosage: 50 MG, QD
     Dates: start: 2014
  3. SERTRALINE [Concomitant]
     Active Substance: SERTRALINE HYDROCHLORIDE
     Indication: DEPRESSION
     Dosage: 50 UNK, UNK
     Dates: start: 2016
  4. COVERSYL [Concomitant]
     Active Substance: PERINDOPRIL
     Indication: HYPERTENSION
     Dosage: 4 MG, QD
     Dates: start: 2002
  5. CALCIUM [Concomitant]
     Active Substance: CALCIUM
     Dosage: UNK, QD
  6. VITAMIN D [Concomitant]
     Active Substance: CHOLECALCIFEROL
     Dosage: UNK, QD

REACTIONS (22)
  - Insomnia [Unknown]
  - Rash [Not Recovered/Not Resolved]
  - Medial tibial stress syndrome [Unknown]
  - Cough [Unknown]
  - Aphonia [Recovered/Resolved]
  - Blood iron increased [Recovered/Resolved]
  - Skin sensitisation [Not Recovered/Not Resolved]
  - Pain of skin [Unknown]
  - Blood cholesterol increased [Unknown]
  - Temporomandibular joint syndrome [Recovered/Resolved]
  - Acarodermatitis [Recovering/Resolving]
  - Impaired healing [Unknown]
  - Contusion [Not Recovered/Not Resolved]
  - Basal cell carcinoma [Unknown]
  - Headache [Unknown]
  - Seasonal allergy [Not Recovered/Not Resolved]
  - Hyperaesthesia [Unknown]
  - Feeling hot [Unknown]
  - Lethargy [Unknown]
  - Lid sulcus deepened [Unknown]
  - Varicose vein [Not Recovered/Not Resolved]
  - Rash pustular [Not Recovered/Not Resolved]

NARRATIVE: CASE EVENT DATE: 2017
